FAERS Safety Report 4841527-8 (Version None)
Quarter: 2005Q4

REPORT INFORMATION
  Report Type: 
  Country: None (occurrence: None)
  Receive Date: 20051130
  Receipt Date: 20050816
  Transmission Date: 20060501
  Serious: No
  Sender: FDA-Public Use
  Company Number: US-GLAXOSMITHKLINE-A0570457A

PATIENT
  Age: 47 Year
  Sex: Female

DRUGS (8)
  1. WELLBUTRIN XL [Suspect]
     Indication: DEPRESSION
     Dosage: 150MG PER DAY
     Route: 048
     Dates: start: 20050801
  2. CALCIUM + VITAMIN D [Concomitant]
  3. MULTI-VITAMIN [Concomitant]
  4. RELPAX [Concomitant]
  5. ALLEGRA [Concomitant]
  6. MECLIZINE [Concomitant]
  7. LYSINE [Concomitant]
  8. UNKNOWN MEDICATION [Concomitant]

REACTIONS (7)
  - AFFECT LABILITY [None]
  - AGITATION [None]
  - CRYING [None]
  - IRRITABILITY [None]
  - LIBIDO INCREASED [None]
  - NERVOUSNESS [None]
  - PERSONALITY CHANGE [None]
